FAERS Safety Report 23387414 (Version 1)
Quarter: 2024Q1

REPORT INFORMATION
  Report Type: Spontaneous
  Country: US (occurrence: None)
  Receive Date: 20240109
  Receipt Date: 20240109
  Transmission Date: 20240410
  Serious: Yes (unspecified)
  Sender: FDA-Public Use
  Company Number: None

PATIENT
  Age: 55 Year
  Sex: Female
  Weight: 79.4 kg

DRUGS (1)
  1. PIPERACILLIN SODIUM\TAZOBACTAM SODIUM [Suspect]
     Active Substance: PIPERACILLIN SODIUM\TAZOBACTAM SODIUM
     Indication: Abdominal abscess
     Dosage: FREQUENCY : DAILY;?
     Route: 041
     Dates: start: 20231215, end: 20240101

REACTIONS (1)
  - Type IV hypersensitivity reaction [None]

NARRATIVE: CASE EVENT DATE: 20240101
